FAERS Safety Report 5063133-5 (Version None)
Quarter: 2006Q3

REPORT INFORMATION
  Report Type: 
  Country: None (occurrence: None)
  Receive Date: 20060727
  Receipt Date: 20060720
  Transmission Date: 20061208
  Serious: Yes (Other)
  Sender: FDA-Public Use
  Company Number: FR-JNJFOC-20060605754

PATIENT
  Sex: Male
  Weight: 69 kg

DRUGS (7)
  1. RISPERDAL [Suspect]
     Route: 048
  2. RISPERDAL [Suspect]
     Indication: SCHIZOPHRENIA
     Route: 048
  3. RISPERIDONE CONSTA [Suspect]
     Route: 030
  4. RISPERIDONE CONSTA [Suspect]
     Indication: SCHIZOPHRENIA
     Route: 030
  5. DEPAKOTE [Concomitant]
     Indication: AFFECTIVE DISORDER
  6. LEPTICUR [Concomitant]
     Indication: EXTRAPYRAMIDAL DISORDER
  7. AEQUASYAL [Concomitant]
     Indication: DRUG USE FOR UNKNOWN INDICATION

REACTIONS (2)
  - BLOOD CREATINE PHOSPHOKINASE INCREASED [None]
  - MYALGIA [None]
